FAERS Safety Report 17502904 (Version 2)
Quarter: 2021Q1

REPORT INFORMATION
  Report Type: Spontaneous
  Country: US (occurrence: US)
  Receive Date: 20200305
  Receipt Date: 20210226
  Transmission Date: 20210419
  Serious: No
  Sender: FDA-Public Use
  Company Number: US-ROCHE-2263324

PATIENT
  Sex: Female
  Weight: 81.72 kg

DRUGS (10)
  1. XOLAIR [Suspect]
     Active Substance: OMALIZUMAB
     Indication: ASTHMA
     Dosage: THREE INJECTIONS
     Route: 058
     Dates: start: 2016
  2. XOLAIR [Suspect]
     Active Substance: OMALIZUMAB
     Route: 058
     Dates: start: 20190131
  3. PULMICORT TURBUHALER [Concomitant]
     Active Substance: BUDESONIDE
  4. FOLIC ACID. [Concomitant]
     Active Substance: FOLIC ACID
  5. BIOTIN [Concomitant]
     Active Substance: BIOTIN
  6. OMEPRAZOLE. [Concomitant]
     Active Substance: OMEPRAZOLE
     Route: 065
  7. LEXAPRO [Concomitant]
     Active Substance: ESCITALOPRAM OXALATE
  8. QVAR [Concomitant]
     Active Substance: BECLOMETHASONE DIPROPIONATE
  9. ZANTAC [Concomitant]
     Active Substance: RANITIDINE HYDROCHLORIDE
  10. ALBUTEROL. [Concomitant]
     Active Substance: ALBUTEROL

REACTIONS (2)
  - Pregnancy [Unknown]
  - No adverse event [Unknown]
